FAERS Safety Report 4524246-7 (Version None)
Quarter: 2004Q4

REPORT INFORMATION
  Report Type: 
  Country: None (occurrence: None)
  Receive Date: 20041119
  Receipt Date: 20040927
  Transmission Date: 20050328
  Serious: No
  Sender: FDA-Public Use
  Company Number: PHEH2004US10366

PATIENT
  Age: 61 Year
  Sex: Female

DRUGS (3)
  1. ZELNORM [Suspect]
     Indication: IRRITABLE BOWEL SYNDROME
     Dosage: 2 MG, BID, ORAL
     Route: 048
     Dates: start: 20031201
  2. AMBIEN [Concomitant]
  3. NORTRIPTYLINE HCL [Concomitant]

REACTIONS (5)
  - BACK PAIN [None]
  - DISTURBANCE IN ATTENTION [None]
  - DYSURIA [None]
  - HYPERHIDROSIS [None]
  - PAIN [None]
